FAERS Safety Report 11226032 (Version 2)
Quarter: 2015Q3

REPORT INFORMATION
  Report Type: Spontaneous
  Country: US (occurrence: US)
  Receive Date: 20150629
  Receipt Date: 20150811
  Transmission Date: 20151125
  Serious: Yes (Hospitalization, Other)
  Sender: FDA-Public Use
  Company Number: US-ENDO PHARMACEUTICALS INC.-2015-001557

PATIENT
  Age: 53 Year
  Sex: Male
  Weight: 93.07 kg

DRUGS (7)
  1. XIAFLEX [Suspect]
     Active Substance: COLLAGENASE CLOSTRIDIUM HISTOLYTICUM
     Route: 026
     Dates: start: 20150602
  2. BUPRNORPHINE [Concomitant]
     Indication: SUBSTANCE ABUSE
     Route: 065
  3. PRAZOSIN [Concomitant]
     Active Substance: PRAZOSIN
     Indication: HYPERTENSION
     Route: 065
  4. KLONOPIN [Concomitant]
     Active Substance: CLONAZEPAM
     Indication: BIPOLAR DISORDER
     Route: 065
  5. XIAFLEX [Suspect]
     Active Substance: COLLAGENASE CLOSTRIDIUM HISTOLYTICUM
     Indication: PEYRONIE^S DISEASE
     Route: 026
     Dates: start: 20150605, end: 20150623
  6. PROZAC [Concomitant]
     Active Substance: FLUOXETINE HYDROCHLORIDE
     Indication: BIPOLAR DISORDER
     Route: 065
  7. XIAFLEX [Suspect]
     Active Substance: COLLAGENASE CLOSTRIDIUM HISTOLYTICUM
     Route: 026
     Dates: start: 20150603

REACTIONS (6)
  - Skin discolouration [Not Recovered/Not Resolved]
  - Ecchymosis [Unknown]
  - Dysuria [Recovered/Resolved]
  - Penile swelling [Recovering/Resolving]
  - Penile pain [Recovered/Resolved]
  - Penile haematoma [Recovered/Resolved]

NARRATIVE: CASE EVENT DATE: 201506
